FAERS Safety Report 11292184 (Version 1)
Quarter: 2015Q3

REPORT INFORMATION
  Report Type: Spontaneous
  Country: NL (occurrence: NL)
  Receive Date: 20150722
  Receipt Date: 20150722
  Transmission Date: 20151125
  Serious: Yes (Other)
  Sender: FDA-Public Use
  Company Number: NL-NOVEN PHARMACEUTICALS, INC.-NL2015000558

PATIENT

DRUGS (1)
  1. PAROXETINE [Suspect]
     Active Substance: PAROXETINE\PAROXETINE HYDROCHLORIDE
     Indication: DEPRESSION
     Dosage: 20 MG, UNKNOWN
     Route: 065
     Dates: start: 200805, end: 201011

REACTIONS (9)
  - Hypoaesthesia [Recovering/Resolving]
  - Erectile dysfunction [Not Recovered/Not Resolved]
  - Sensory loss [Recovering/Resolving]
  - Anosmia [Recovered/Resolved]
  - Emotional disorder [Not Recovered/Not Resolved]
  - Ageusia [Recovered/Resolved]
  - Sexual dysfunction [Not Recovered/Not Resolved]
  - Ejaculation failure [Not Recovered/Not Resolved]
  - Partner stress [Not Recovered/Not Resolved]
